FAERS Safety Report 8333736-0 (Version None)
Quarter: 2012Q2

REPORT INFORMATION
  Report Type: 
  Country: None (occurrence: None)
  Receive Date: 20120503
  Receipt Date: 20120503
  Transmission Date: 20120825
  Serious: Yes (Death)
  Sender: FDA-Public Use
  Company Number: None

PATIENT
  Age: 69 Year
  Sex: Male
  Weight: 58.2 kg

DRUGS (2)
  1. GEMCITABINE [Suspect]
     Indication: PANCREATIC CARCINOMA
     Dosage: |STRENGTH: ABRAXANE||FREQ: WEEKLY|
     Dates: start: 20120223, end: 20120302
  2. SIROLIMUS [Suspect]
     Dosage: |STRENGTH: RITONAVIR||FREQ: WEEKLY|

REACTIONS (8)
  - BLOOD LACTIC ACID INCREASED [None]
  - ABDOMINAL PAIN [None]
  - LYMPHOPENIA [None]
  - LIVER INJURY [None]
  - INTESTINAL PERFORATION [None]
  - RENAL DISORDER [None]
  - NEUTROPENIA [None]
  - OFF LABEL USE [None]
